FAERS Safety Report 16632883 (Version 8)
Quarter: 2021Q2

REPORT INFORMATION
  Report Type: Spontaneous
  Country: US (occurrence: US)
  Receive Date: 20190725
  Receipt Date: 20210407
  Transmission Date: 20210716
  Serious: Yes (Hospitalization, Other)
  Sender: FDA-Public Use
  Company Number: US-PFIZER INC-2019309062

PATIENT
  Age: 73 Year
  Sex: Female
  Weight: 56 kg

DRUGS (4)
  1. IBRANCE [Suspect]
     Active Substance: PALBOCICLIB
     Dosage: 75 MG, CYCLIC (ONCE DAILY, 7 DAYS ON THEN 7 DAYS OFF)
     Route: 048
  2. LETROZOLE. [Concomitant]
     Active Substance: LETROZOLE
     Dosage: 2.5 MG, UNK
  3. IBRANCE [Suspect]
     Active Substance: PALBOCICLIB
     Indication: BREAST CANCER METASTATIC
     Dosage: 100 MG, CYCLIC (ONCE A DAY, CYCLE OF 3 WEEKS ON, 1 WEEK OFF)
  4. IBRANCE [Suspect]
     Active Substance: PALBOCICLIB
     Dosage: 75 MG, CYCLIC (ONCE A DAY, 2 WEEKS ON, 2 WEEKS OFF)
     Route: 048

REACTIONS (9)
  - White blood cell count decreased [Not Recovered/Not Resolved]
  - Nail disorder [Not Recovered/Not Resolved]
  - Product dose omission issue [Unknown]
  - Blindness [Unknown]
  - Decreased appetite [Not Recovered/Not Resolved]
  - Extra dose administered [Unknown]
  - Gastrointestinal motility disorder [Unknown]
  - Alopecia [Not Recovered/Not Resolved]
  - Radiation injury [Unknown]
